FAERS Safety Report 6675111-0 (Version None)
Quarter: 2010Q2

REPORT INFORMATION
  Report Type: 
  Country: None (occurrence: None)
  Receive Date: 20100409
  Receipt Date: 20100407
  Transmission Date: 20101027
  Serious: Yes (Hospitalization)
  Sender: FDA-Public Use
  Company Number: US-ELI_LILLY_AND_COMPANY-US201002006944

PATIENT
  Sex: Male

DRUGS (18)
  1. HUMULIN 70/30 [Suspect]
     Indication: DIABETES MELLITUS
     Dosage: 6 U, EACH MORNING
     Dates: start: 19900101
  2. HUMULIN 70/30 [Suspect]
     Dosage: 16 U, EACH EVENING
     Dates: start: 19900101
  3. HUMULIN 70/30 [Suspect]
     Dosage: 20 U, EACH EVENING
     Dates: start: 19900101
  4. HUMULIN 70/30 [Suspect]
     Dosage: 35 U, EACH MORNING
     Dates: start: 20100101
  5. HUMULIN 70/30 [Suspect]
     Dosage: 35 U, EACH EVENING
     Dates: start: 20100101
  6. HUMULIN 70/30 [Suspect]
     Dosage: 6 U, EACH MORNING
     Dates: start: 19900101
  7. HUMULIN 70/30 [Suspect]
     Dosage: 16 U, EACH EVENING
     Dates: start: 19900101
  8. HUMULIN 70/30 [Suspect]
     Dosage: 20 U, EACH EVENING
     Dates: start: 19900101
  9. HUMULIN 70/30 [Suspect]
     Dosage: 35 U, EACH MORNING
     Dates: start: 20100101
  10. HUMULIN 70/30 [Suspect]
     Dosage: 35 U, EACH EVENING
     Dates: start: 20100101
  11. HUMULIN 70/30 [Suspect]
     Dosage: 30 U, EACH MORNING
  12. HUMULIN 70/30 [Suspect]
     Dosage: 5 U, OTHER
  13. HUMULIN 70/30 [Suspect]
     Dosage: 12 U, EACH EVENING
  14. HUMULIN 70/30 [Suspect]
     Dates: start: 20100101
  15. MYFORTIC [Concomitant]
  16. PROGRAF [Concomitant]
  17. PREDNISONE TAB [Concomitant]
  18. VALCYTE [Concomitant]
     Dosage: 450 MG, DAILY (1/D)

REACTIONS (3)
  - BLOOD GLUCOSE INCREASED [None]
  - GLYCOSYLATED HAEMOGLOBIN INCREASED [None]
  - RENAL TRANSPLANT [None]
